FAERS Safety Report 9247735 (Version 1)
Quarter: 2013Q2

REPORT INFORMATION
  Report Type: Spontaneous
  Country: US (occurrence: None)
  Receive Date: 20130419
  Receipt Date: 20130419
  Transmission Date: 20140414
  Serious: No
  Sender: FDA-Public Use
  Company Number: None

PATIENT
  Age: 27 Year
  Sex: Male
  Weight: 81.65 kg

DRUGS (3)
  1. BUPROPION XL 150MG MYLAN [Suspect]
     Route: 048
     Dates: start: 20120821, end: 20121012
  2. BUPROPION [Suspect]
     Route: 048
     Dates: start: 20121123, end: 20121218
  3. BUPROPION [Concomitant]

REACTIONS (3)
  - Rash [None]
  - Therapeutic response unexpected with drug substitution [None]
  - Drug ineffective [None]
